FAERS Safety Report 5958360-6 (Version None)
Quarter: 2008Q4

REPORT INFORMATION
  Report Type: 
  Country: None (occurrence: None)
  Receive Date: 20081117
  Receipt Date: 20081106
  Transmission Date: 20090506
  Serious: Yes (Other)
  Sender: FDA-Public Use
  Company Number: CIP08001735

PATIENT
  Age: 86 Year
  Sex: Female
  Weight: 94.3 kg

DRUGS (6)
  1. ACTONEL [Suspect]
     Indication: OSTEOPOROSIS
     Dosage: 150 MG ONCE MONTHLY, ORAL
     Route: 048
     Dates: start: 20080709, end: 20080818
  2. ACETYLSALICYLIC ACID SRT [Concomitant]
  3. CRESTOR [Concomitant]
  4. DARVOCET /00220901/ (DEXTROPROPDXYPHENE HYDROCHLORIDE, PARACETAMOL) [Concomitant]
  5. ATENOLOL [Concomitant]
  6. LISINOPRIL + HIDROCLOROTIAZIDA (HYDROCHLOROTHIAZIDE, LISINOPRIL) [Concomitant]

REACTIONS (2)
  - CEREBRAL ATROPHY [None]
  - PSYCHOTIC DISORDER [None]
